FAERS Safety Report 19844256 (Version 11)
Quarter: 2024Q1

REPORT INFORMATION
  Report Type: Spontaneous
  Country: CA (occurrence: CA)
  Receive Date: 20210916
  Receipt Date: 20240328
  Transmission Date: 20240409
  Serious: Yes (Other)
  Sender: FDA-Public Use
  Company Number: CA-PFIZER INC-202101068488

PATIENT
  Age: 62 Year
  Sex: Male
  Weight: 90 kg

DRUGS (13)
  1. RUXIENCE [Suspect]
     Active Substance: RITUXIMAB-PVVR
     Indication: Myositis
     Dosage: 1000 MG DAY 1 AND 15
     Route: 042
  2. RUXIENCE [Suspect]
     Active Substance: RITUXIMAB-PVVR
     Indication: Interstitial lung disease
     Dosage: 1000 MG DAY 1 AND 15
     Route: 042
     Dates: start: 20210903, end: 20210918
  3. RUXIENCE [Suspect]
     Active Substance: RITUXIMAB-PVVR
     Dosage: 1000 MG DAY 1 AND 15
     Route: 042
     Dates: start: 20220629, end: 20220714
  4. RUXIENCE [Suspect]
     Active Substance: RITUXIMAB-PVVR
     Dosage: 1000 MG DAY 1 AND 15
     Route: 042
     Dates: start: 20230217, end: 20230303
  5. RUXIENCE [Suspect]
     Active Substance: RITUXIMAB-PVVR
     Dosage: 1000 MG DAY 1 AND 15
     Route: 042
     Dates: start: 20230303
  6. RUXIENCE [Suspect]
     Active Substance: RITUXIMAB-PVVR
     Dosage: 1000 MG DAY 1 (DAY 1 AND 15 )
     Route: 042
     Dates: start: 20230822
  7. RUXIENCE [Suspect]
     Active Substance: RITUXIMAB-PVVR
     Dosage: 1000 MG (DAY 1 AND 15 )
     Route: 042
     Dates: start: 20230906
  8. RUXIENCE [Suspect]
     Active Substance: RITUXIMAB-PVVR
     Dosage: 1000 MG (DAY 1 AND 15 )
     Route: 042
     Dates: start: 20240318
  9. ACETAMINOPHEN [Concomitant]
     Active Substance: ACETAMINOPHEN
     Indication: Premedication
     Dosage: UNK
     Dates: start: 20230822, end: 20230822
  10. ALENDRONATE [Concomitant]
     Active Substance: ALENDRONATE SODIUM
     Dosage: UNK
  11. DIMENHYDRINATE [Concomitant]
     Active Substance: DIMENHYDRINATE
     Indication: Premedication
     Dosage: UNK
     Dates: start: 20230822, end: 20230822
  12. SOLU-MEDROL [Concomitant]
     Active Substance: METHYLPREDNISOLONE SODIUM SUCCINATE
     Indication: Premedication
     Dosage: UNK
     Dates: start: 20230822, end: 20230822
  13. TELMISARTAN [Concomitant]
     Active Substance: TELMISARTAN
     Indication: Blood pressure measurement
     Dosage: UNK
     Dates: start: 20220909

REACTIONS (6)
  - Weight increased [Not Recovered/Not Resolved]
  - Fibrosis [Not Recovered/Not Resolved]
  - Hypertension [Not Recovered/Not Resolved]
  - Blood pressure increased [Unknown]
  - Infusion related reaction [Unknown]
  - Off label use [Unknown]

NARRATIVE: CASE EVENT DATE: 20210903
